FAERS Safety Report 8802118 (Version 2)
Quarter: 2012Q4

REPORT INFORMATION
  Report Type: 
  Country: US (occurrence: US)
  Receive Date: 20120921
  Receipt Date: 20121124
  Transmission Date: 20130627
  Serious: Yes (Other)
  Sender: FDA-Public Use
  Company Number: US-BAYER-2012-098088

PATIENT
  Age: 44 Year
  Sex: Female

DRUGS (5)
  1. YASMIN [Suspect]
     Indication: BIRTH CONTROL
  2. YAZ [Suspect]
  3. OCELLA [Suspect]
  4. TRAVATAN [Concomitant]
     Dosage: UNK
     Dates: start: 20060107
  5. ALEVE [Concomitant]
     Indication: HEADACHE
     Dosage: UNK UNK, PRN
     Dates: start: 20060107

REACTIONS (2)
  - Deep vein thrombosis [None]
  - Injury [None]
